FAERS Safety Report 9346859 (Version 2)
Quarter: 2013Q2

REPORT INFORMATION
  Report Type: Spontaneous
  Country: US (occurrence: US)
  Receive Date: 20130613
  Receipt Date: 20130628
  Transmission Date: 20140414
  Serious: No
  Sender: FDA-Public Use
  Company Number: US-PFIZER INC-2013175476

PATIENT
  Sex: Female

DRUGS (2)
  1. ADVIL [Suspect]
     Indication: PAIN
     Dosage: UNK
     Dates: start: 20130601
  2. ADVIL [Suspect]
     Indication: INFLUENZA

REACTIONS (5)
  - Decreased appetite [Unknown]
  - Fatigue [Unknown]
  - Dry mouth [Unknown]
  - Body temperature decreased [Unknown]
  - Malaise [Unknown]
